FAERS Safety Report 8984718 (Version 1)
Quarter: 2012Q4

REPORT INFORMATION
  Report Type: Spontaneous
  Country: US (occurrence: None)
  Receive Date: 20121217
  Receipt Date: 20121217
  Transmission Date: 20130627
  Serious: Yes (Hospitalization)
  Sender: FDA-Public Use
  Company Number: 2012DEPUS00460

PATIENT
  Age: 34 Year
  Sex: Male
  Weight: 68 kg

DRUGS (5)
  1. DEPOCYTE (CYTARABINE) LIPOSOME INJECTABLE SUSPENSION, MG [Suspect]
     Indication: BURKITT^S LYMPHOMA
     Dosage: every 2 weeks
     Route: 037
  2. GABAPENTIN (GABAPENTIN) [Concomitant]
  3. CIPRO (CIPROFLOXACIN LACTATE) [Concomitant]
  4. MORPHINE (MORPHINE HYDROCHLORIDE) [Concomitant]
  5. ACYCLOVIR (ACICLOVIR) (ACICLOVIR) [Concomitant]

REACTIONS (10)
  - VIth nerve paralysis [None]
  - Hypoglossal nerve paralysis [None]
  - Photophobia [None]
  - Diplopia [None]
  - Pancytopenia [None]
  - Off label use [None]
  - Paraesthesia [None]
  - Headache [None]
  - Gait disturbance [None]
  - Arachnoiditis [None]
